FAERS Safety Report 10163744 (Version 2)
Quarter: 2014Q2

REPORT INFORMATION
  Report Type: Spontaneous
  Country: BR (occurrence: BR)
  Receive Date: 20140509
  Receipt Date: 20140613
  Transmission Date: 20141212
  Serious: Yes (Life-Threatening, Hospitalization)
  Sender: FDA-Public Use
  Company Number: BR-PFIZER INC-2014127725

PATIENT
  Age: 55 Year
  Sex: Female
  Weight: 49 kg

DRUGS (3)
  1. CELECOXIB [Suspect]
     Indication: RHEUMATOID ARTHRITIS
     Dosage: 2 TABLETS AT MORNING, 1 TABLET AFTER LUNCH, 3 TABLETS AT NIGHT
     Route: 048
     Dates: start: 2012, end: 201405
  2. IBUPROFEN [Suspect]
     Indication: RHEUMATOID ARTHRITIS
     Dosage: UNK
  3. NAPROXEN [Suspect]
     Indication: RHEUMATOID ARTHRITIS
     Dosage: UNK

REACTIONS (2)
  - Infarction [Unknown]
  - Heart injury [Unknown]
